FAERS Safety Report 8791488 (Version 1)
Quarter: 2012Q4

REPORT INFORMATION
  Report Type: Spontaneous
  Country: US (occurrence: None)
  Receive Date: 20120914
  Receipt Date: 20120914
  Transmission Date: 20130627
  Serious: Yes (Hospitalization)
  Sender: FDA-Public Use
  Company Number: None

PATIENT
  Age: 47 Year
  Sex: Female
  Weight: 91.63 kg

DRUGS (2)
  1. YASMIN [Suspect]
     Indication: ORAL CONTRACEPTIVE
     Dates: start: 20060612, end: 20111119
  2. OCELLA [Suspect]

REACTIONS (2)
  - Gallbladder injury [None]
  - Gallbladder disorder [None]
